FAERS Safety Report 14182798 (Version 2)
Quarter: 2017Q4

REPORT INFORMATION
  Report Type: Report from Study
  Country: None (occurrence: US)
  Receive Date: 20171113
  Receipt Date: 20171122
  Transmission Date: 20180321
  Serious: Yes (Hospitalization)
  Sender: FDA-Public Use
  Company Number: US-ABBVIE-17K-163-2156153-00

PATIENT
  Age: 82 Year
  Sex: Female
  Weight: 84.9 kg

DRUGS (11)
  1. AMLODIPINE BESYLATE. [Concomitant]
     Active Substance: AMLODIPINE BESYLATE
     Indication: HYPERTENSION
  2. GLIMEPIRIDE. [Concomitant]
     Active Substance: GLIMEPIRIDE
     Indication: DIABETES MELLITUS
  3. ISOSORBIDE. [Concomitant]
     Active Substance: ISOSORBIDE
     Indication: CARDIAC DISORDER
  4. HUMIRA [Suspect]
     Active Substance: ADALIMUMAB
     Route: 058
     Dates: start: 201710
  5. CARDIZEM [Concomitant]
     Active Substance: DILTIAZEM HYDROCHLORIDE
     Indication: HYPERTENSION
  6. METFORMIN [Concomitant]
     Active Substance: METFORMIN HYDROCHLORIDE
     Indication: DIABETES MELLITUS
  7. TIMOLOL. [Concomitant]
     Active Substance: TIMOLOL
     Indication: GLAUCOMA
  8. ASPIRIN. [Concomitant]
     Active Substance: ASPIRIN
     Indication: ANTICOAGULANT THERAPY
  9. VITAMIN D3 [Concomitant]
     Active Substance: CHOLECALCIFEROL
     Indication: VITAMIN SUPPLEMENTATION
  10. HUMIRA [Suspect]
     Active Substance: ADALIMUMAB
     Indication: RHEUMATOID ARTHRITIS
     Route: 058
     Dates: start: 201704, end: 201710
  11. LASIX [Concomitant]
     Active Substance: FUROSEMIDE
     Indication: DIURETIC THERAPY

REACTIONS (6)
  - Intestinal obstruction [Recovering/Resolving]
  - Asthenia [Unknown]
  - Neck pain [Not Recovered/Not Resolved]
  - Malaise [Recovering/Resolving]
  - Diarrhoea [Recovered/Resolved]
  - Musculoskeletal pain [Not Recovered/Not Resolved]

NARRATIVE: CASE EVENT DATE: 201710
